FAERS Safety Report 12411937 (Version 2)
Quarter: 2017Q4

REPORT INFORMATION
  Report Type: Spontaneous
  Country: FR (occurrence: FR)
  Receive Date: 20160527
  Receipt Date: 20171026
  Transmission Date: 20180320
  Serious: Yes (Other)
  Sender: FDA-Public Use
  Company Number: FR-PFIZER INC-2016267475

PATIENT
  Age: 78 Year
  Sex: Male

DRUGS (3)
  1. TAHOR [Suspect]
     Active Substance: ATORVASTATIN CALCIUM
     Indication: DYSLIPIDAEMIA
     Dosage: UNK
     Route: 048
     Dates: end: 201606
  2. RIFADINE /00146901/ [Suspect]
     Active Substance: RIFAMPIN
     Indication: OSTEITIS
     Dosage: 700 MG, 2X/DAY
     Route: 048
     Dates: start: 20160419
  3. FUSIDIC ACID [Suspect]
     Active Substance: FUSIDIC ACID
     Indication: OSTEITIS
     Dosage: 500 MG, 3X/DAY
     Route: 048
     Dates: start: 20160419, end: 201606

REACTIONS (4)
  - Hepatitis A virus test positive [Unknown]
  - Hyperbilirubinaemia [Recovered/Resolved]
  - Cholestasis [Recovered/Resolved]
  - Jaundice [Recovered/Resolved]

NARRATIVE: CASE EVENT DATE: 20160420
